FAERS Safety Report 7013622-9 (Version None)
Quarter: 2010Q3

REPORT INFORMATION
  Report Type: 
  Country: None (occurrence: None)
  Receive Date: 20100924
  Receipt Date: 20100916
  Transmission Date: 20110219
  Serious: Yes (Hospitalization, Other)
  Sender: FDA-Public Use
  Company Number: DE-AMGEN-QUU438873

PATIENT
  Age: 58 Year
  Sex: Male

DRUGS (8)
  1. ARANESP [Suspect]
     Indication: RENAL FAILURE CHRONIC
     Route: 058
     Dates: start: 20100407, end: 20100915
  2. CELLCEPT [Suspect]
     Route: 048
     Dates: start: 20100401, end: 20100916
  3. MINERAL TAB [Concomitant]
     Route: 042
     Dates: start: 20100805
  4. FUROSEMIDE [Concomitant]
     Route: 048
     Dates: start: 20060101
  5. ACTOS [Concomitant]
     Route: 048
     Dates: start: 20100412
  6. ROCALTROL [Concomitant]
     Route: 048
     Dates: start: 20100407
  7. CYCLOPHOSPHAMIDE [Concomitant]
     Dates: start: 20040701, end: 20060301
  8. IRON [Concomitant]

REACTIONS (8)
  - APLASIA PURE RED CELL [None]
  - ASTHENIA [None]
  - DECREASED APPETITE [None]
  - DRUG EFFECT DECREASED [None]
  - ERYTHROBLAST COUNT DECREASED [None]
  - FATIGUE [None]
  - HAEMOGLOBIN DECREASED [None]
  - THROMBOCYTOPENIA [None]
